FAERS Safety Report 11795155 (Version 1)
Quarter: 2015Q4

REPORT INFORMATION
  Report Type: Spontaneous
  Country: US (occurrence: US)
  Receive Date: 20151202
  Receipt Date: 20151202
  Transmission Date: 20160305
  Serious: No
  Sender: FDA-Public Use
  Company Number: ALCN2003US001312

PATIENT
  Sex: Female

DRUGS (3)
  1. BION TEARS [Suspect]
     Active Substance: DEXTRAN 70\HYPROMELLOSE 2910 (4000 MPA.S)
     Indication: DRY EYE
  2. DURATEARS [Suspect]
     Active Substance: MINERAL OIL EMULSION\PETROLATUM
     Indication: DRY EYE
  3. TEARS NATURALE FREE [Suspect]
     Active Substance: DEXTRAN 70\HYPROMELLOSE 2910 (4000 MPA.S)
     Indication: DRY EYE
     Dosage: GTT PRN OPHT
     Route: 047

REACTIONS (2)
  - Condition aggravated [Recovered/Resolved]
  - Drug ineffective [None]
